FAERS Safety Report 14764766 (Version 1)
Quarter: 2018Q2

REPORT INFORMATION
  Report Type: Spontaneous
  Country: US (occurrence: US)
  Receive Date: 20180416
  Receipt Date: 20180416
  Transmission Date: 20180711
  Serious: Yes (Other)
  Sender: FDA-Public Use
  Company Number: US-BAYER-2018-068975

PATIENT
  Sex: Female

DRUGS (4)
  1. MIRENA [Suspect]
     Active Substance: LEVONORGESTREL
     Indication: MENORRHAGIA
  2. MIRENA [Suspect]
     Active Substance: LEVONORGESTREL
     Indication: CONTRACEPTION
     Dosage: 20 MCG/24HR, CONT
     Route: 015
     Dates: start: 2015
  3. MIRENA [Suspect]
     Active Substance: LEVONORGESTREL
  4. MIRENA [Suspect]
     Active Substance: LEVONORGESTREL

REACTIONS (8)
  - Pelvic pain [None]
  - Presyncope [None]
  - Musculoskeletal discomfort [None]
  - Amenorrhoea [None]
  - Seizure [None]
  - Cardiac disorder [None]
  - Palpitations [None]
  - Vision blurred [None]
